FAERS Safety Report 16429732 (Version 3)
Quarter: 2019Q3

REPORT INFORMATION
  Report Type: Spontaneous
  Country: US (occurrence: US)
  Receive Date: 20190614
  Receipt Date: 20190722
  Transmission Date: 20191004
  Serious: Yes (Other)
  Sender: FDA-Public Use
  Company Number: US-AMGEN-USASP2019092928

PATIENT
  Age: 71 Year
  Sex: Male
  Weight: 78.46 kg

DRUGS (22)
  1. PRINZIDE [Concomitant]
     Active Substance: HYDROCHLOROTHIAZIDE\LISINOPRIL
     Dosage: 20 MILLIGRAM, QD
     Route: 048
  2. AVASTIN [Suspect]
     Active Substance: BEVACIZUMAB
     Indication: METASTASES TO LUNG
  3. FOLINIC ACID [Concomitant]
     Active Substance: LEUCOVORIN
     Indication: SMALL INTESTINE CARCINOMA METASTATIC
     Dosage: UNK UNK, Q2WK
     Dates: start: 20181114
  4. NORVASC [Concomitant]
     Active Substance: AMLODIPINE BESYLATE
     Dosage: 5 MILLIGRAM, QD
     Route: 048
  5. CYANOCOBALAMIN. [Concomitant]
     Active Substance: CYANOCOBALAMIN
     Dosage: 1 DOSAGE FORM, QD, AS NEEDED
     Route: 048
  6. ZESTORETIC [Concomitant]
     Active Substance: HYDROCHLOROTHIAZIDE\LISINOPRIL
     Dosage: 12.5 MILLIGRAM, QD
     Route: 048
  7. FERROUS SULFATE. [Concomitant]
     Active Substance: FERROUS SULFATE
     Dosage: 325 MILLIGRAM, BID WITH MEALS
     Route: 048
  8. 5-FU [FLUOROURACIL] [Concomitant]
     Active Substance: FLUOROURACIL
     Indication: SMALL INTESTINE CARCINOMA METASTATIC
     Dosage: UNK UNK, Q2WK
     Dates: start: 20181114, end: 20190424
  9. EMLA [LIDOCAINE;PRILOCAINE] [Concomitant]
     Dosage: UNK APPLIED ON PORT SITE 30-45 MIN PRIOR TO CHEMO OR BLOOD DRAWS
  10. ZOFRAN [Concomitant]
     Active Substance: ONDANSETRON HYDROCHLORIDE
     Dosage: 8 MILLIGRAM
  11. OXALIPLATIN. [Concomitant]
     Active Substance: OXALIPLATIN
     Indication: SMALL INTESTINE CARCINOMA METASTATIC
     Dosage: UNK UNK, Q2WK
     Dates: start: 20181114
  12. AVASTIN [Suspect]
     Active Substance: BEVACIZUMAB
     Indication: SMALL INTESTINE CARCINOMA METASTATIC
     Dosage: UNK
     Route: 065
     Dates: start: 20190205
  13. CLARITIN [Concomitant]
     Active Substance: LORATADINE
     Indication: HYPERSENSITIVITY
     Dosage: 10 MILLIGRAM, QD, AS NEEDED
     Route: 048
  14. PROTONIX [Concomitant]
     Active Substance: PANTOPRAZOLE SODIUM
     Dosage: 40 MILLIGRAM, BID
     Route: 048
  15. COMPAZINE [PROCHLORPERAZINE EDISYLATE] [Concomitant]
     Active Substance: PROCHLORPERAZINE EDISYLATE
     Indication: NAUSEA
     Dosage: 10 MILLIGRAM, Q8H, AS NEEDED
     Route: 048
  16. OXALIPLATIN. [Concomitant]
     Active Substance: OXALIPLATIN
     Indication: METASTASES TO LUNG
  17. FERRLECIT [FERRIC SODIUM GLUCONATE COMPLEX] [Concomitant]
     Indication: IRON DEFICIENCY ANAEMIA
     Dosage: UNK
     Dates: start: 2018
  18. NEULASTA [Suspect]
     Active Substance: PEGFILGRASTIM
     Indication: NEUTROPENIA
     Dosage: UNK UNK, Q2WK
     Route: 065
     Dates: start: 20181221
  19. CHOLECALCIFEROL [Concomitant]
     Active Substance: CHOLECALCIFEROL
     Dosage: 1 DOSAGE FORM, QD, AS NEEDED
     Route: 048
  20. ZOCOR [Concomitant]
     Active Substance: SIMVASTATIN
     Indication: HYPERLIPIDAEMIA
     Dosage: 20 MILLIGRAM, QHS
     Route: 048
  21. FOLINIC ACID [Concomitant]
     Active Substance: LEUCOVORIN
     Indication: METASTASES TO LUNG
  22. 5-FU [FLUOROURACIL] [Concomitant]
     Active Substance: FLUOROURACIL
     Indication: METASTASES TO LUNG

REACTIONS (6)
  - Neuropathy peripheral [Unknown]
  - Inappropriate schedule of product administration [Unknown]
  - Skin hyperpigmentation [Unknown]
  - Wrong technique in product usage process [Unknown]
  - Neutropenia [Unknown]
  - Bone pain [Unknown]

NARRATIVE: CASE EVENT DATE: 20181221
